FAERS Safety Report 6482109-4 (Version None)
Quarter: 2009Q4

REPORT INFORMATION
  Report Type: 
  Country: None (occurrence: None)
  Receive Date: 20091208
  Receipt Date: 20090406
  Transmission Date: 20100525
  Serious: No
  Sender: FDA-Public Use
  Company Number: US-AMGEN-KDL341892

PATIENT
  Sex: Female
  Weight: 66.3 kg

DRUGS (2)
  1. ENBREL [Suspect]
     Indication: PSORIATIC ARTHROPATHY
     Route: 058
     Dates: start: 20081101
  2. ENBREL [Suspect]
     Indication: ARTHRITIS

REACTIONS (8)
  - ABDOMINAL DISTENSION [None]
  - DRUG INEFFECTIVE [None]
  - DYSPHAGIA [None]
  - ERUCTATION [None]
  - NAUSEA [None]
  - RASH MACULAR [None]
  - RASH PRURITIC [None]
  - SCAB [None]
